FAERS Safety Report 5127979-7 (Version None)
Quarter: 2006Q4

REPORT INFORMATION
  Report Type: 
  Country: None (occurrence: None)
  Receive Date: 20061016
  Receipt Date: 20061006
  Transmission Date: 20070319
  Serious: Yes (Other)
  Sender: FDA-Public Use
  Company Number: FRWYE155909OCT06

PATIENT
  Sex: Female

DRUGS (5)
  1. ENBREL [Suspect]
     Indication: ANKYLOSING SPONDYLITIS
     Route: 058
     Dates: start: 20060301
  2. NEXEN [Concomitant]
     Dosage: UNKNOWN
     Route: 048
  3. ACTONEL [Concomitant]
     Dosage: UNKNOWN
     Route: 048
  4. LEXOMIL [Concomitant]
     Dosage: UNKNOWN
     Route: 048
  5. DEPAKENE [Concomitant]
     Dosage: UNKNOWN

REACTIONS (2)
  - CONDITION AGGRAVATED [None]
  - MENINGIOMA BENIGN [None]
